FAERS Safety Report 10294900 (Version 2)
Quarter: 2014Q3

REPORT INFORMATION
  Report Type: Spontaneous
  Country: US (occurrence: US)
  Receive Date: 20140710
  Receipt Date: 20140710
  Transmission Date: 20150326
  Serious: No
  Sender: FDA-Public Use
  Company Number: US-ASTRAZENECA-2014SE29946

PATIENT
  Age: 90 Year
  Sex: Male
  Weight: 70.8 kg

DRUGS (5)
  1. NEXIUM [Suspect]
     Active Substance: ESOMEPRAZOLE MAGNESIUM
     Indication: REGURGITATION
     Route: 048
     Dates: start: 2012
  2. TOPROL XL [Suspect]
     Active Substance: METOPROLOL SUCCINATE
     Indication: HYPERTENSION
     Route: 048
  3. ZEGRID [Concomitant]
     Indication: REGURGITATION
     Dosage: UNKNOWN DAILY
     Dates: start: 2013
  4. CHLOROTHALAZONE [Concomitant]
     Indication: HYPERTENSION
     Dates: start: 2013
  5. TOPROL XL [Suspect]
     Active Substance: METOPROLOL SUCCINATE
     Indication: EXTRASYSTOLES
     Route: 048

REACTIONS (3)
  - Extrasystoles [Unknown]
  - Drug effect incomplete [Unknown]
  - Intentional product misuse [Unknown]
